FAERS Safety Report 24027089 (Version 1)
Quarter: 2024Q2

REPORT INFORMATION
  Report Type: Spontaneous
  Country: US (occurrence: US)
  Receive Date: 20240628
  Receipt Date: 20240628
  Transmission Date: 20240716
  Serious: No
  Sender: FDA-Public Use
  Company Number: US-ROCHE-3577312

PATIENT
  Sex: Female

DRUGS (2)
  1. ALECENSA [Suspect]
     Active Substance: ALECTINIB HYDROCHLORIDE
     Indication: Metastases to central nervous system
     Dosage: TAKE 5 CAPSULES (750 MG TOTAL) BY MOUTH EVERY MORNING AND 6 CAPSULES (900 MG TOTAL) EVERY EVENING TA
     Route: 048
     Dates: start: 20170125
  2. FISH OIL [Concomitant]
     Active Substance: FISH OIL

REACTIONS (2)
  - Off label use [Unknown]
  - No adverse event [Unknown]
